FAERS Safety Report 24238541 (Version 2)
Quarter: 2024Q3

REPORT INFORMATION
  Report Type: Spontaneous
  Country: US (occurrence: US)
  Receive Date: 20240822
  Receipt Date: 20240917
  Transmission Date: 20241017
  Serious: No
  Sender: GLAND PHARMA
  Company Number: US-GLANDPHARMA-US-2024GLNSPO00659

PATIENT
  Sex: Female

DRUGS (4)
  1. ZOLEDRONIC ACID [Suspect]
     Active Substance: ZOLEDRONIC ACID
     Indication: Product used for unknown indication
     Route: 065
     Dates: start: 20240531
  2. MOMETASONE [Concomitant]
     Active Substance: MOMETASONE
     Route: 065
  3. MOMETASONE [Concomitant]
     Active Substance: MOMETASONE
  4. MOMETASONE [Concomitant]
     Active Substance: MOMETASONE

REACTIONS (4)
  - Drug eruption [Unknown]
  - Erythema [Unknown]
  - Pruritus [Unknown]
  - Skin irritation [Unknown]

NARRATIVE: CASE EVENT DATE: 20240101
